FAERS Safety Report 23164472 (Version 1)
Quarter: 2023Q4

REPORT INFORMATION
  Report Type: Spontaneous
  Country: IN (occurrence: IN)
  Receive Date: 20231109
  Receipt Date: 20231109
  Transmission Date: 20240110
  Serious: Yes (Hospitalization)
  Sender: FDA-Public Use
  Company Number: IN-MYLANLABS-2023M1118053

PATIENT
  Sex: Male

DRUGS (4)
  1. PHENYTOIN [Suspect]
     Active Substance: PHENYTOIN
     Indication: Generalised tonic-clonic seizure
     Dosage: 20 MILLIGRAM/KILOGRAM (LOADING DOSE)
     Route: 065
  2. PHENYTOIN [Suspect]
     Active Substance: PHENYTOIN
     Indication: Partial seizures
     Dosage: 2.5 MILLIGRAM/KILOGRAM (MAINTENANCE THERAPY)
     Route: 065
  3. LEVETIRACETAM [Suspect]
     Active Substance: LEVETIRACETAM
     Indication: Generalised tonic-clonic seizure
     Dosage: 50 MILLIGRAM/KILOGRAM, BID (LOADING DOSE)
     Route: 065
  4. LEVETIRACETAM [Suspect]
     Active Substance: LEVETIRACETAM
     Indication: Partial seizures
     Dosage: 10 MILLIGRAM/KILOGRAM, BID (MAINTENANCE THERAPY)
     Route: 065

REACTIONS (1)
  - Drug ineffective [Unknown]
